FAERS Safety Report 5162949-4 (Version None)
Quarter: 2006Q4

REPORT INFORMATION
  Report Type: 
  Country: None (occurrence: None)
  Receive Date: 20061201
  Receipt Date: 20061122
  Transmission Date: 20070319
  Serious: Yes (Hospitalization)
  Sender: FDA-Public Use
  Company Number: FR-SANOFI-SYNTHELABO-F01200602373

PATIENT
  Sex: Male
  Weight: 78 kg

DRUGS (6)
  1. VEPESID [Suspect]
     Dosage: 100 MG/M2 FOR 5 DAYS Q3W
     Route: 042
     Dates: start: 20060322, end: 20060322
  2. PAXENE [Suspect]
     Route: 042
     Dates: start: 20060317, end: 20060317
  3. HOLOXAN [Suspect]
     Dosage: 2 G/M2 ON D10, 12, 14 Q3W
     Route: 042
     Dates: start: 20060512, end: 20060512
  4. BLEOMYCIN [Suspect]
     Dosage: 30 MG/DAY ON D1,8 AND 15 Q3W OR 25 UNIT/DAY AS CONTINUOUS INFUSION FROM D10 TO 14
     Route: 042
     Dates: start: 20060421, end: 20060421
  5. CISPLATIN [Suspect]
     Dosage: 20 MG/M2 FOR 5 DAYS Q3W, OR 100 MG/M2 ON D1 Q3W
     Route: 042
     Dates: start: 20060428, end: 20060428
  6. OXALIPLATIN [Suspect]
     Indication: GERM CELL CANCER
     Route: 042
     Dates: start: 20060323, end: 20060323

REACTIONS (4)
  - HYPOXIA [None]
  - POST PROCEDURAL COMPLICATION [None]
  - RESPIRATORY DISTRESS [None]
  - SEPSIS [None]
